FAERS Safety Report 17164819 (Version 1)
Quarter: 2019Q4

REPORT INFORMATION
  Report Type: Spontaneous
  Country: US (occurrence: US)
  Receive Date: 20191217
  Receipt Date: 20191217
  Transmission Date: 20200122
  Serious: Yes (Hospitalization)
  Sender: FDA-Public Use
  Company Number: US-ROCHE-2391833

PATIENT
  Sex: Female

DRUGS (1)
  1. LUCENTIS [Suspect]
     Active Substance: RANIBIZUMAB
     Indication: RETINOPATHY HYPERTENSIVE
     Dosage: INTO RIGHT AND LEFT EYE EVERY 4 WEEKS
     Route: 050

REACTIONS (1)
  - Cerebrovascular accident [Unknown]
